FAERS Safety Report 25241891 (Version 2)
Quarter: 2025Q2

REPORT INFORMATION
  Report Type: Spontaneous
  Country: US (occurrence: US)
  Receive Date: 20250426
  Receipt Date: 20250426
  Transmission Date: 20250716
  Serious: Yes (Other)
  Sender: AMGEN
  Company Number: US-AMGEN-USASP2025078303

PATIENT
  Sex: Female

DRUGS (1)
  1. BEVACIZUMAB [Suspect]
     Active Substance: BEVACIZUMAB
     Indication: Arteriovenous malformation
     Route: 040

REACTIONS (4)
  - Iron deficiency anaemia [Unknown]
  - Epistaxis [Unknown]
  - Drug ineffective for unapproved indication [Unknown]
  - Off label use [Unknown]
